FAERS Safety Report 6484266-2 (Version None)
Quarter: 2009Q4

REPORT INFORMATION
  Report Type: 
  Country: None (occurrence: None)
  Receive Date: 20091203
  Receipt Date: 20091125
  Transmission Date: 20100525
  Serious: Yes (Other)
  Sender: FDA-Public Use
  Company Number: 2009SP038416

PATIENT
  Age: 28 Year
  Sex: Female

DRUGS (2)
  1. REMERON [Suspect]
     Indication: ANXIETY DISORDER
     Dosage: 15 MG;QD
     Dates: start: 20080501
  2. LORAZEPAM [Suspect]
     Indication: ANXIETY DISORDER
     Dosage: 2 MG;QD
     Dates: start: 20080501

REACTIONS (2)
  - ABORTION SPONTANEOUS [None]
  - DRUG EXPOSURE DURING PREGNANCY [None]
